FAERS Safety Report 23932837 (Version 3)
Quarter: 2025Q1

REPORT INFORMATION
  Report Type: Report from Study
  Country: DE (occurrence: DE)
  Receive Date: 20240603
  Receipt Date: 20250321
  Transmission Date: 20250409
  Serious: Yes (Other)
  Sender: UCB
  Company Number: DE-UCBSA-2024027307

PATIENT
  Sex: Female
  Weight: 92 kg

DRUGS (17)
  1. BIMEKIZUMAB [Suspect]
     Active Substance: BIMEKIZUMAB
     Indication: Psoriasis
     Dosage: 320 MILLIGRAM, EV 8 WEEKS
     Route: 058
     Dates: start: 20231123, end: 20240517
  2. BIMEKIZUMAB [Suspect]
     Active Substance: BIMEKIZUMAB
     Indication: Psoriatic arthropathy
     Dosage: 320 MILLIGRAM, EV 6 WEEKS
     Route: 058
     Dates: start: 20240517, end: 20240717
  3. METHOTREXATE [Concomitant]
     Active Substance: METHOTREXATE
     Indication: Psoriasis
     Dosage: 20 MILLIGRAM, WEEKLY (QW)
     Route: 058
     Dates: start: 2007
  4. METHOTREXATE [Concomitant]
     Active Substance: METHOTREXATE
     Indication: Polyarthritis
  5. MELOXICAM [Concomitant]
     Active Substance: MELOXICAM
     Indication: Hypertension
     Dosage: 20 MILLIGRAM, ONCE DAILY (QD)
     Route: 048
  6. PANTOPRAZOLE SODIUM [Concomitant]
     Active Substance: PANTOPRAZOLE SODIUM
     Indication: Asthma
     Dosage: 10 MILLIGRAM, ONCE DAILY (QD)
     Route: 048
  7. ABATACEPT [Concomitant]
     Active Substance: ABATACEPT
     Indication: Hypertension
     Dosage: 2.5 MILLIGRAM, ONCE DAILY (QD)
     Route: 048
  8. ETANERCEPT [Concomitant]
     Active Substance: ETANERCEPT
     Indication: Polyarthritis
     Route: 048
  9. RAMIPRIL [Concomitant]
     Active Substance: RAMIPRIL
     Indication: Asthma
     Route: 048
  10. MONTELUKAST [Concomitant]
     Active Substance: MONTELUKAST
     Indication: Polyarthritis
     Route: 048
  11. TAPENTADOL [Concomitant]
     Active Substance: TAPENTADOL
     Indication: Depression
     Dosage: 150 MILLIGRAM, ONCE DAILY (QD)
     Route: 048
  12. FOLIC ACID [Concomitant]
     Active Substance: FOLIC ACID
     Indication: Type 2 diabetes mellitus
     Dosage: 23 IE, ONCE DAILY (QD)
     Route: 058
  13. METHOTREXATE [Concomitant]
     Active Substance: METHOTREXATE
     Indication: Prophylaxis
     Dosage: 20 MILLIGRAM, ONCE DAILY (QD)
     Route: 048
  14. DESLORATADINE [Concomitant]
     Active Substance: DESLORATADINE
     Indication: Adverse drug reaction
     Dosage: 5 MILLIGRAM, WEEKLY (QW)
     Route: 048
     Dates: start: 20230119
  15. VENLAFAXINE HYDROCHLORIDE [Concomitant]
     Active Substance: VENLAFAXINE HYDROCHLORIDE
     Indication: Psoriasis
     Dosage: 20 MILLIGRAM, WEEKLY (QW)
     Route: 058
     Dates: start: 20230119
  16. VENLAFAXINE HYDROCHLORIDE [Concomitant]
     Active Substance: VENLAFAXINE HYDROCHLORIDE
     Indication: Polyarthritis
  17. NYSTATIN [Concomitant]
     Active Substance: NYSTATIN
     Indication: Product used for unknown indication

REACTIONS (3)
  - Enterococcal infection [Recovered/Resolved]
  - Cystitis [Recovered/Resolved]
  - Off label use [Unknown]

NARRATIVE: CASE EVENT DATE: 20240422
